FAERS Safety Report 7776233-3 (Version None)
Quarter: 2011Q3

REPORT INFORMATION
  Report Type: 
  Country: None (occurrence: None)
  Receive Date: 20110926
  Receipt Date: 20110915
  Transmission Date: 20111222
  Serious: No
  Sender: FDA-Public Use
  Company Number: US-PFIZER INC-2011221328

PATIENT
  Age: 51 Year
  Sex: Female

DRUGS (2)
  1. KLONOPIN [Concomitant]
     Indication: ANXIETY
     Dosage: PRN
  2. PROPRANOLOL HCL [Suspect]
     Indication: PALPITATIONS
     Dosage: 80 MG, 1X/DAY
     Dates: start: 20110914

REACTIONS (1)
  - ANXIETY [None]
